FAERS Safety Report 8318728-X (Version None)
Quarter: 2012Q2

REPORT INFORMATION
  Report Type: 
  Country: None (occurrence: None)
  Receive Date: 20120427
  Receipt Date: 20120417
  Transmission Date: 20120825
  Serious: Yes (Other)
  Sender: FDA-Public Use
  Company Number: CA-JNJFOC-20120408296

PATIENT
  Sex: Female
  Weight: 61.4 kg

DRUGS (2)
  1. ATIVAN [Concomitant]
     Route: 065
  2. REMICADE [Suspect]
     Indication: COLITIS ULCERATIVE
     Route: 042
     Dates: start: 20120229

REACTIONS (2)
  - SINUSITIS [None]
  - SPINAL DISORDER [None]
